FAERS Safety Report 13065501 (Version 1)
Quarter: 2016Q4

REPORT INFORMATION
  Report Type: Spontaneous
  Country: FR (occurrence: FR)
  Receive Date: 20161227
  Receipt Date: 20161227
  Transmission Date: 20170207
  Serious: Yes (Hospitalization)
  Sender: FDA-Public Use
  Company Number: FR-VIFOR (INTERNATIONAL) INC.-VIT-2016-08782

PATIENT
  Age: 75 Year
  Sex: Male

DRUGS (18)
  1. ENDOXAN [Suspect]
     Active Substance: CYCLOPHOSPHAMIDE
     Indication: PRODUCT USED FOR UNKNOWN INDICATION
     Route: 042
     Dates: start: 20151011, end: 20160412
  2. EUPRESSYL [Concomitant]
     Active Substance: URAPIDIL
  3. BACTRIM [Concomitant]
     Active Substance: SULFAMETHOXAZOLE\TRIMETHOPRIM
     Indication: RESPIRATORY TRACT INFECTION
     Dates: start: 20160509, end: 20160531
  4. TRIATEC [Concomitant]
     Active Substance: RAMIPRIL
     Dates: start: 20160729, end: 2016
  5. EUPANTOL [Concomitant]
     Active Substance: PANTOPRAZOLE SODIUM
  6. LIPANTHYL [Concomitant]
     Active Substance: FENOFIBRATE
  7. IMOVANE [Concomitant]
     Active Substance: ZOPICLONE
  8. TRIATEC [Concomitant]
     Active Substance: RAMIPRIL
     Dates: start: 201604, end: 201604
  9. IMUREL [Concomitant]
     Active Substance: AZATHIOPRINE SODIUM
     Dates: start: 2016, end: 20160531
  10. ARANESP [Concomitant]
     Active Substance: DARBEPOETIN ALFA
     Dates: end: 20160907
  11. KAYEXALATE [Concomitant]
     Active Substance: SODIUM POLYSTYRENE SULFONATE
     Dates: start: 2016
  12. CEFTRIAXONE SODIUM. [Concomitant]
     Active Substance: CEFTRIAXONE SODIUM
     Indication: URINARY TRACT INFECTION
  13. LASILIX [Concomitant]
     Active Substance: FUROSEMIDE
     Dates: start: 201604, end: 201604
  14. ARANESP [Concomitant]
     Active Substance: DARBEPOETIN ALFA
     Dates: start: 2016
  15. IMUREL [Concomitant]
     Active Substance: AZATHIOPRINE SODIUM
     Dates: start: 2016
  16. CEFTRIAXONE SODIUM. [Concomitant]
     Active Substance: CEFTRIAXONE SODIUM
     Indication: RESPIRATORY TRACT INFECTION
  17. MIRCERA [Suspect]
     Active Substance: METHOXY POLYETHYLENE GLYCOL-EPOETIN BETA
     Indication: PRODUCT USED FOR UNKNOWN INDICATION
     Route: 065
     Dates: start: 20160909
  18. AMLOR [Concomitant]
     Active Substance: AMLODIPINE BESYLATE
     Dates: start: 2016

REACTIONS (1)
  - Haematuria [Not Recovered/Not Resolved]

NARRATIVE: CASE EVENT DATE: 201609
